FAERS Safety Report 6427761-4 (Version None)
Quarter: 2009Q4

REPORT INFORMATION
  Report Type: 
  Country: None (occurrence: None)
  Receive Date: 20091105
  Receipt Date: 20091023
  Transmission Date: 20100525
  Serious: Yes (Hospitalization)
  Sender: FDA-Public Use
  Company Number: GB-ELI_LILLY_AND_COMPANY-GB200907007162

PATIENT
  Sex: Male
  Weight: 54.7 kg

DRUGS (7)
  1. PEMETREXED [Suspect]
     Dosage: 800 MG, EVERY 3 WEEKS
     Route: 042
     Dates: start: 20090706
  2. OMEPRAZOLE [Concomitant]
     Indication: DYSPEPSIA
  3. METOCLOPRAMIDE [Concomitant]
     Indication: NAUSEA
     Dates: start: 20090707
  4. ONDANSETRON [Concomitant]
     Indication: NAUSEA
     Dates: start: 20090706
  5. TINZAPARIN [Concomitant]
     Indication: PULMONARY EMBOLISM
     Dates: start: 20090701
  6. FOLIC ACID [Concomitant]
     Indication: SUPPLEMENTATION THERAPY
     Dates: start: 20090101
  7. VITAMIN B-12 [Concomitant]
     Indication: SUPPLEMENTATION THERAPY
     Dates: start: 20090702

REACTIONS (3)
  - ANAEMIA [None]
  - URINARY INCONTINENCE [None]
  - URINARY RETENTION [None]
